FAERS Safety Report 4705157-0 (Version None)
Quarter: 2005Q3

REPORT INFORMATION
  Report Type: 
  Country: None (occurrence: None)
  Receive Date: 20050701
  Receipt Date: 20050524
  Transmission Date: 20060218
  Serious: No
  Sender: FDA-Public Use
  Company Number: 2005UW08040

PATIENT
  Age: 16971 Day
  Sex: Male
  Weight: 68.2 kg

DRUGS (2)
  1. CRESTOR [Suspect]
     Indication: HYPERCHOLESTEROLAEMIA
     Route: 048
     Dates: start: 20050506, end: 20050506
  2. ASPIRIN [Concomitant]

REACTIONS (1)
  - HYPERSENSITIVITY [None]
